FAERS Safety Report 4632116-9 (Version None)
Quarter: 2005Q2

REPORT INFORMATION
  Report Type: 
  Country: None (occurrence: None)
  Receive Date: 20050401
  Receipt Date: 20040714
  Transmission Date: 20051028
  Serious: No
  Sender: FDA-Public Use
  Company Number: 04P-163-0267661-00

PATIENT
  Age: 43 Year
  Sex: Female
  Weight: 123 kg

DRUGS (6)
  1. DEPAKOTE [Suspect]
     Indication: BIPOLAR DISORDER
     Dosage: 500 MG, 4 IN 1 D, ORAL
     Route: 048
     Dates: start: 20000101
  2. SERTRALINE HYDROCHLORIDE [Concomitant]
  3. METFORMIN [Concomitant]
  4. VERAPAMIL [Concomitant]
  5. FUROSEMIDE [Concomitant]
  6. GABAPENTIN [Concomitant]

REACTIONS (1)
  - WEIGHT INCREASED [None]
